APPROVED DRUG PRODUCT: HALCINONIDE
Active Ingredient: HALCINONIDE
Strength: 0.1%
Dosage Form/Route: CREAM;TOPICAL
Application: A214723 | Product #001 | TE Code: AB
Applicant: CHARTWELL RX SCIENCES LLC
Approved: Sep 8, 2021 | RLD: No | RS: No | Type: RX